FAERS Safety Report 8239374-2 (Version None)
Quarter: 2012Q1

REPORT INFORMATION
  Report Type: 
  Country: None (occurrence: None)
  Receive Date: 20120326
  Receipt Date: 20120312
  Transmission Date: 20120608
  Serious: Yes (Hospitalization)
  Sender: FDA-Public Use
  Company Number: 2012MA003498

PATIENT
  Age: 77 Year
  Sex: Male

DRUGS (3)
  1. ASPIRIN [Concomitant]
  2. INDAPAMIDE [Suspect]
     Indication: HYPERTENSION
     Dosage: 2.5 MG;	;PO
     Route: 048
     Dates: start: 20120215, end: 20120221
  3. CANDESARTAN [Concomitant]

REACTIONS (2)
  - CONVULSION [None]
  - BLOOD SODIUM DECREASED [None]
